FAERS Safety Report 4647962-5 (Version None)
Quarter: 2005Q2

REPORT INFORMATION
  Report Type: 
  Country: None (occurrence: None)
  Receive Date: 20050428
  Receipt Date: 20050421
  Transmission Date: 20051028
  Serious: Yes (Hospitalization)
  Sender: FDA-Public Use
  Company Number: PHEH2005US04689

PATIENT
  Sex: Male

DRUGS (1)
  1. LOTREL [Suspect]
     Indication: HYPERTENSION
     Dosage: UNK, QD
     Route: 048

REACTIONS (5)
  - ABDOMINAL DISTENSION [None]
  - INTESTINAL OBSTRUCTION [None]
  - NAUSEA [None]
  - PAIN [None]
  - VOMITING [None]
